FAERS Safety Report 19583239 (Version 2)
Quarter: 2021Q4

REPORT INFORMATION
  Report Type: Spontaneous
  Country: US (occurrence: US)
  Receive Date: 20210719
  Receipt Date: 20211103
  Transmission Date: 20220303
  Serious: No
  Sender: FDA-Public Use
  Company Number: US-ELI_LILLY_AND_COMPANY-US202107003919

PATIENT
  Age: 72 Year
  Sex: Female

DRUGS (2)
  1. TRULICITY [Suspect]
     Active Substance: DULAGLUTIDE
     Indication: Product used for unknown indication
     Dosage: 0.75 MG, UNKNOWN
     Route: 065
  2. TRULICITY [Suspect]
     Active Substance: DULAGLUTIDE
     Dosage: 1.5 MG, WEEKLY (1/W)
     Route: 065

REACTIONS (7)
  - Rib fracture [Unknown]
  - Weight increased [Unknown]
  - Fall [Recovering/Resolving]
  - Glycosylated haemoglobin increased [Unknown]
  - Joint injury [Recovering/Resolving]
  - Arthritis [Unknown]
  - Weight decreased [Unknown]

NARRATIVE: CASE EVENT DATE: 20210601
